FAERS Safety Report 6701467-6 (Version None)
Quarter: 2010Q2

REPORT INFORMATION
  Report Type: 
  Country: None (occurrence: None)
  Receive Date: 20100427
  Receipt Date: 20100416
  Transmission Date: 20101027
  Serious: Yes (Hospitalization)
  Sender: FDA-Public Use
  Company Number: 1-22284393

PATIENT
  Sex: Male
  Weight: 90.2658 kg

DRUGS (1)
  1. METHYLPREDNISOLONE [Suspect]
     Indication: COMPUTERISED TOMOGRAM
     Dosage: 8 TABLETS, ONCE, ORAL
     Route: 048
     Dates: start: 20100121, end: 20100121

REACTIONS (3)
  - DIARRHOEA [None]
  - ELECTROLYTE IMBALANCE [None]
  - VOMITING [None]
